FAERS Safety Report 6194626-5 (Version None)
Quarter: 2009Q2

REPORT INFORMATION
  Report Type: 
  Country: None (occurrence: None)
  Receive Date: 20090515
  Receipt Date: 20090515
  Transmission Date: 20091009
  Serious: Yes (Life-Threatening, Hospitalization)
  Sender: FDA-Public Use
  Company Number: None

PATIENT
  Age: 91 Year
  Sex: Male
  Weight: 119 kg

DRUGS (1)
  1. WARFARIN SODIUM [Suspect]
     Dosage: 12.5 MG EVERY DAY PO
     Route: 048
     Dates: start: 20090301, end: 20090318

REACTIONS (4)
  - ACCIDENTAL EXPOSURE [None]
  - HAEMATOMA [None]
  - INTERNATIONAL NORMALISED RATIO INCREASED [None]
  - WRONG DRUG ADMINISTERED [None]
